FAERS Safety Report 6155814-7 (Version None)
Quarter: 2009Q2

REPORT INFORMATION
  Report Type: 
  Country: None (occurrence: None)
  Receive Date: 20090415
  Receipt Date: 20090403
  Transmission Date: 20091009
  Serious: Yes (Death, Other)
  Sender: FDA-Public Use
  Company Number: JP-PFIZER INC-2009189677

PATIENT

DRUGS (3)
  1. CAMPTOSAR [Suspect]
     Indication: GASTRIC CANCER
     Dosage: 200 MG/BODY (155 MG/M2)
     Route: 041
     Dates: start: 20090210, end: 20090210
  2. CAMPTOSAR [Suspect]
     Dosage: 150 MG (116.3 MG/M2), UNK
     Route: 041
     Dates: start: 20090305, end: 20090305
  3. ALBUMINAR [Concomitant]
     Dosage: 500 ML, UNK
     Route: 041
     Dates: start: 20090315, end: 20090317

REACTIONS (9)
  - ANOREXIA [None]
  - DISSEMINATED INTRAVASCULAR COAGULATION [None]
  - INFECTION [None]
  - LEUKOPENIA [None]
  - MALAISE [None]
  - NEUTROPENIA [None]
  - RENAL FAILURE [None]
  - SEPSIS [None]
  - THROMBOCYTOPENIA [None]
